FAERS Safety Report 7216229-3 (Version None)
Quarter: 2011Q1

REPORT INFORMATION
  Report Type: 
  Country: None (occurrence: None)
  Receive Date: 20110107
  Receipt Date: 20101230
  Transmission Date: 20110831
  Serious: Yes (Hospitalization, Other)
  Sender: FDA-Public Use
  Company Number: US-BAYER-2010-009319

PATIENT
  Age: 2 Day

DRUGS (1)
  1. NEO-SYNEPHRINOL [Suspect]
     Indication: PRODUCT USED FOR UNKNOWN INDICATION
     Dosage: NEO-SYNEPHRINE PLACED IN THEIR NOSE WITH A DROPPER
     Route: 045

REACTIONS (1)
  - INFANTILE APNOEIC ATTACK [None]
